FAERS Safety Report 25187301 (Version 1)
Quarter: 2025Q2

REPORT INFORMATION
  Report Type: Other
  Country: US (occurrence: US)
  Receive Date: 20250411
  Receipt Date: 20250411
  Transmission Date: 20250717
  Serious: Yes (Death, Other)
  Sender: ALVOGEN
  Company Number: US-ALVOGEN-2025097699

PATIENT
  Age: 37 Year
  Sex: Female

DRUGS (6)
  1. METHYLPHENIDATE [Suspect]
     Active Substance: METHYLPHENIDATE
     Indication: Suicide attempt
     Route: 065
  2. CLONIDINE [Suspect]
     Active Substance: CLONIDINE
     Indication: Suicide attempt
     Route: 065
  3. MORPHINE [Suspect]
     Active Substance: MORPHINE
     Indication: Suicide attempt
     Route: 065
  4. PHENOBARBITAL [Suspect]
     Active Substance: PHENOBARBITAL
     Indication: Suicide attempt
     Route: 065
  5. COCAINE [Suspect]
     Active Substance: COCAINE
     Indication: Suicide attempt
     Route: 065
  6. LEVETIRACETAM [Suspect]
     Active Substance: LEVETIRACETAM
     Indication: Suicide attempt
     Route: 065

REACTIONS (1)
  - Completed suicide [Fatal]
